FAERS Safety Report 13046095 (Version 1)
Quarter: 2016Q4

REPORT INFORMATION
  Report Type: Spontaneous
  Country: US (occurrence: US)
  Receive Date: 20161220
  Receipt Date: 20161220
  Transmission Date: 20170207
  Serious: No
  Sender: FDA-Public Use
  Company Number: US-COVIS PHARMA S.A.R.L.-2016COV00069

PATIENT
  Sex: Female

DRUGS (1)
  1. SOTALOL. [Suspect]
     Active Substance: SOTALOL
     Indication: ATRIAL FIBRILLATION

REACTIONS (1)
  - Atrial fibrillation [Unknown]
